FAERS Safety Report 12536462 (Version 3)
Quarter: 2016Q4

REPORT INFORMATION
  Report Type: Spontaneous
  Country: DE (occurrence: DE)
  Receive Date: 20160707
  Receipt Date: 20161019
  Transmission Date: 20170207
  Serious: Yes (Hospitalization)
  Sender: FDA-Public Use
  Company Number: DE-SA-2016SA121030

PATIENT
  Sex: Female

DRUGS (6)
  1. PANTOZOL [Concomitant]
     Active Substance: PANTOPRAZOLE SODIUM
     Dosage: 1-0-0
  2. VALSARTAN. [Concomitant]
     Active Substance: VALSARTAN
  3. AUBAGIO [Suspect]
     Active Substance: TERIFLUNOMIDE
     Indication: MULTIPLE SCLEROSIS
     Route: 048
     Dates: start: 20160224
  4. FRAXIPARINE [Concomitant]
     Active Substance: NADROPARIN CALCIUM
     Route: 058
  5. AUBAGIO [Suspect]
     Active Substance: TERIFLUNOMIDE
     Indication: MULTIPLE SCLEROSIS
     Route: 048
     Dates: start: 2015
  6. EFEROX [Concomitant]
     Active Substance: LEVOTHYROXINE SODIUM

REACTIONS (8)
  - Carcinoembryonic antigen increased [Unknown]
  - Gastrooesophageal reflux disease [Unknown]
  - Scan abdomen abnormal [Unknown]
  - Gastritis [Unknown]
  - Colitis [Unknown]
  - Lymphadenopathy [Unknown]
  - Ovarian cancer [Unknown]
  - Cholestasis [Unknown]

NARRATIVE: CASE EVENT DATE: 201605
